FAERS Safety Report 8550279-X (Version None)
Quarter: 2012Q3

REPORT INFORMATION
  Report Type: 
  Country: None (occurrence: None)
  Receive Date: 20120730
  Receipt Date: 20120724
  Transmission Date: 20120928
  Serious: Yes (Other)
  Sender: FDA-Public Use
  Company Number: PHHY2012GB063556

PATIENT
  Sex: Female

DRUGS (1)
  1. ACETAMINOPHEN AND CODEINE PHOSPHATE [Suspect]
     Dosage: 2 DF, Q4H
     Dates: start: 20120611, end: 20120613

REACTIONS (5)
  - WHITE BLOOD CELL COUNT DECREASED [None]
  - PLATELET COUNT DECREASED [None]
  - CARDIOVASCULAR DISORDER [None]
  - HAEMOGLOBIN DECREASED [None]
  - BONE MARROW DISORDER [None]
